FAERS Safety Report 12377720 (Version 1)
Quarter: 2016Q2

REPORT INFORMATION
  Report Type: Spontaneous
  Country: US (occurrence: US)
  Receive Date: 20160517
  Receipt Date: 20160517
  Transmission Date: 20160815
  Serious: No
  Sender: FDA-Public Use
  Company Number: US-MALLINCKRODT-T201600323

PATIENT
  Age: 61 Year
  Sex: Female

DRUGS (14)
  1. ACETAMINOPHEN\HYDROCODONE BITARTRATE [Concomitant]
     Active Substance: ACETAMINOPHEN\HYDROCODONE BITARTRATE
  2. AVONEX [Concomitant]
     Active Substance: INTERFERON BETA-1A
  3. TOPAMAX [Concomitant]
     Active Substance: TOPIRAMATE
  4. PROMETHAZINE HCL [Concomitant]
     Active Substance: PROMETHAZINE HYDROCHLORIDE
  5. H.P. ACTHAR [Suspect]
     Active Substance: CORTICOTROPIN
     Indication: IDIOPATHIC GENERALISED EPILEPSY
     Dosage: 1ML EVERY DAY FOR 5 DAYS
     Route: 058
     Dates: start: 20160126
  6. CLOPIDOGREL [Concomitant]
     Active Substance: CLOPIDOGREL BISULFATE
  7. CITALOPRAM HYDROBROMIDE. [Concomitant]
     Active Substance: CITALOPRAM HYDROBROMIDE
  8. TIZANIDINE HCL [Concomitant]
     Active Substance: TIZANIDINE HYDROCHLORIDE
     Dosage: 2 MG
  9. ALPRAZOLAM. [Concomitant]
     Active Substance: ALPRAZOLAM
  10. NAMENDA [Concomitant]
     Active Substance: MEMANTINE HYDROCHLORIDE
     Dosage: 10 MG
  11. SIMVASTATIN. [Concomitant]
     Active Substance: SIMVASTATIN
     Dosage: 20 MG
  12. LEXAPRO [Concomitant]
     Active Substance: ESCITALOPRAM OXALATE
     Dosage: 20 MG
  13. GABAPENTIN. [Concomitant]
     Active Substance: GABAPENTIN
  14. PROVENTIL [Concomitant]
     Active Substance: ALBUTEROL
     Dosage: 2 MG

REACTIONS (2)
  - Off label use [Not Recovered/Not Resolved]
  - Injection site bruising [Not Recovered/Not Resolved]

NARRATIVE: CASE EVENT DATE: 20160126
